FAERS Safety Report 17863467 (Version 2)
Quarter: 2020Q4

REPORT INFORMATION
  Report Type: Spontaneous
  Country: NL (occurrence: NL)
  Receive Date: 20200604
  Receipt Date: 20201008
  Transmission Date: 20210113
  Serious: Yes (Other)
  Sender: FDA-Public Use
  Company Number: NL-AUROBINDO-AUR-APL-2020-026943

PATIENT
  Age: 65 Year
  Sex: Male

DRUGS (16)
  1. QUETIAPINE. [Interacting]
     Active Substance: QUETIAPINE
     Dosage: 20 MILLIGRAM, ONCE A DAY
     Route: 065
     Dates: start: 202002
  2. ELIGARD [Interacting]
     Active Substance: LEUPROLIDE ACETATE
     Dosage: 45 MILLIGRAM (6 MONTHS)
     Route: 058
     Dates: start: 20160318
  3. ELIGARD [Interacting]
     Active Substance: LEUPROLIDE ACETATE
     Dosage: 45 MILLIGRAM (EVERY 6 MONTHS)
     Route: 058
     Dates: start: 20160913
  4. ELIGARD [Interacting]
     Active Substance: LEUPROLIDE ACETATE
     Dosage: 45 MILLIGRAM (EVERY 6 MONTHS)
     Route: 058
     Dates: start: 20160913
  5. ELIGARD [Interacting]
     Active Substance: LEUPROLIDE ACETATE
     Indication: PROSTATE CANCER
     Dosage: 45 MILLIGRAM (6 MONTHS)
     Route: 058
     Dates: start: 20160318
  6. ELIGARD [Interacting]
     Active Substance: LEUPROLIDE ACETATE
     Dosage: 45 MILLIGRAM (EVERY 6 MONTHS)
     Route: 058
     Dates: start: 20191031
  7. QUETIAPINE. [Interacting]
     Active Substance: QUETIAPINE
     Indication: ANTIDEPRESSANT THERAPY
     Dosage: 20 MILLIGRAM, ONCE A DAY
     Route: 065
     Dates: start: 201610, end: 2019
  8. ELIGARD [Interacting]
     Active Substance: LEUPROLIDE ACETATE
     Dosage: 45 MILLIGRAM (EVERY 6 MONTHS)
     Route: 058
     Dates: start: 20200804
  9. QUETIAPINE. [Interacting]
     Active Substance: QUETIAPINE
     Dosage: 20 MILLIGRAM, ONCE A DAY
     Route: 065
     Dates: start: 201610, end: 2019
  10. FLUOXETINE [Suspect]
     Active Substance: FLUOXETINE HYDROCHLORIDE
     Indication: ANTIDEPRESSANT THERAPY
     Dosage: 50 MILLIGRAM
     Route: 065
  11. ELIGARD [Interacting]
     Active Substance: LEUPROLIDE ACETATE
     Dosage: 45 MILLIGRAM (EVERY 6 MONTHS)
     Route: 058
     Dates: start: 20191031
  12. ELIGARD [Interacting]
     Active Substance: LEUPROLIDE ACETATE
     Dosage: 45 MILLIGRAM (EVERY 6 MONTHS)
     Route: 058
     Dates: start: 20191031
  13. QUETIAPINE. [Interacting]
     Active Substance: QUETIAPINE
     Dosage: 20 MILLIGRAM, ONCE A DAY
     Route: 065
     Dates: start: 202002
  14. ELIGARD [Interacting]
     Active Substance: LEUPROLIDE ACETATE
     Dosage: 45 MILLIGRAM (6 MONTHS)
     Route: 058
     Dates: start: 20160318
  15. CITALOPRAM [Suspect]
     Active Substance: CITALOPRAM HYDROBROMIDE
     Indication: ANTIDEPRESSANT THERAPY
     Dosage: 20 MILLIGRAM, TWO TIMES A DAY
     Route: 065
     Dates: start: 201610
  16. ELIGARD [Interacting]
     Active Substance: LEUPROLIDE ACETATE
     Dosage: 45 MILLIGRAM (EVERY 6 MONTHS)
     Route: 058
     Dates: start: 20160913

REACTIONS (3)
  - Drug ineffective for unapproved indication [Unknown]
  - Drug interaction [Unknown]
  - Depression [Not Recovered/Not Resolved]

NARRATIVE: CASE EVENT DATE: 2016
